FAERS Safety Report 7175042-6 (Version None)
Quarter: 2010Q4

REPORT INFORMATION
  Report Type: 
  Country: None (occurrence: None)
  Receive Date: 20101220
  Receipt Date: 20100215
  Transmission Date: 20110411
  Serious: No
  Sender: FDA-Public Use
  Company Number: US-AMGEN-TCS393012

PATIENT

DRUGS (2)
  1. ENBREL [Suspect]
     Indication: RHEUMATOID ARTHRITIS
     Dosage: 50 MG, QWK
     Route: 058
     Dates: start: 20091102, end: 20100118
  2. METHOTREXATE [Concomitant]
     Dosage: 12.5 MG, QWK
     Route: 058

REACTIONS (4)
  - ARTHRITIS [None]
  - MIGRAINE [None]
  - SINUS HEADACHE [None]
  - SINUSITIS [None]
